FAERS Safety Report 9708611 (Version 2)
Quarter: 2014Q1

REPORT INFORMATION
  Report Type: Spontaneous
  Country: US (occurrence: US)
  Receive Date: 20131125
  Receipt Date: 20140121
  Transmission Date: 20141002
  Serious: Yes (Other)
  Sender: FDA-Public Use
  Company Number: US-PFIZER INC-2013334864

PATIENT
  Age: 14 Year
  Sex: Female
  Weight: 33 kg

DRUGS (2)
  1. GENOTROPIN [Suspect]
     Indication: GROWTH HORMONE DEFICIENCY
     Dosage: UNK, 1X/DAY
     Route: 058
     Dates: start: 2009
  2. SYNTHROID [Concomitant]
     Dosage: UNK

REACTIONS (2)
  - Gastrointestinal disorder [Unknown]
  - Procedural complication [Unknown]
